FAERS Safety Report 6401290-6 (Version None)
Quarter: 2009Q4

REPORT INFORMATION
  Report Type: 
  Country: None (occurrence: None)
  Receive Date: 20091015
  Receipt Date: 20091005
  Transmission Date: 20100525
  Serious: Yes (Hospitalization)
  Sender: FDA-Public Use
  Company Number: PHHY2009FR39897

PATIENT
  Sex: Female

DRUGS (2)
  1. TEGRETOL [Suspect]
     Indication: AFFECTIVE DISORDER
     Dosage: 400 MG, QD
     Route: 048
     Dates: start: 20090703, end: 20090819
  2. EFFEXOR [Suspect]
     Dosage: 75 MG, UNK
     Dates: end: 20090819

REACTIONS (12)
  - CHOLESTASIS [None]
  - CYTOLYTIC HEPATITIS [None]
  - DERMATITIS EXFOLIATIVE [None]
  - DRUG RASH WITH EOSINOPHILIA AND SYSTEMIC SYMPTOMS [None]
  - EOSINOPHILIA [None]
  - HEPATOMEGALY [None]
  - HYPERTHERMIA [None]
  - MENTAL DISORDER [None]
  - NODULE ON EXTREMITY [None]
  - OEDEMA [None]
  - PRURITUS [None]
  - PYREXIA [None]
